FAERS Safety Report 21703173 (Version 1)
Quarter: 2022Q4

REPORT INFORMATION
  Report Type: Other
  Country: CA (occurrence: CA)
  Receive Date: 20221209
  Receipt Date: 20221209
  Transmission Date: 20230112
  Serious: Yes (Hospitalization, Other)
  Sender: FDA-Public Use
  Company Number: CA-APOTEX-2022AP015675

PATIENT
  Age: 64 Year
  Sex: Male

DRUGS (11)
  1. LENALIDOMIDE [Suspect]
     Active Substance: LENALIDOMIDE
     Indication: Plasma cell myeloma
     Dosage: 5 MILLIGRAM, QD
     Route: 048
     Dates: start: 20220711
  2. LENALIDOMIDE [Suspect]
     Active Substance: LENALIDOMIDE
     Dosage: 2.5 MILLIGRAM, QD
     Route: 048
     Dates: start: 20221004
  3. BORTEZOMIB [Suspect]
     Active Substance: BORTEZOMIB
     Indication: Chemotherapy
     Dosage: UNK
     Route: 065
     Dates: start: 20190809, end: 20190828
  4. BORTEZOMIB [Suspect]
     Active Substance: BORTEZOMIB
     Dosage: UNK
     Route: 065
     Dates: start: 20190906
  5. BORTEZOMIB [Suspect]
     Active Substance: BORTEZOMIB
     Dosage: UNK
     Route: 065
     Dates: start: 20191004
  6. BORTEZOMIB [Suspect]
     Active Substance: BORTEZOMIB
     Dosage: UNK
     Route: 065
     Dates: start: 20191011
  7. DEXAMETHASONE [Suspect]
     Active Substance: DEXAMETHASONE
     Indication: Chemotherapy
     Dosage: UNK
     Route: 065
     Dates: start: 20190809, end: 20190828
  8. DEXAMETHASONE [Suspect]
     Active Substance: DEXAMETHASONE
     Dosage: UNK
     Route: 065
     Dates: start: 20190906
  9. DEXAMETHASONE [Suspect]
     Active Substance: DEXAMETHASONE
     Dosage: UNK
     Route: 065
     Dates: start: 20191004
  10. DEXAMETHASONE [Suspect]
     Active Substance: DEXAMETHASONE
     Dosage: UNK
     Route: 065
     Dates: start: 20191011
  11. CYCLOPHOSPHAMIDE [Suspect]
     Active Substance: CYCLOPHOSPHAMIDE
     Indication: Chemotherapy
     Dosage: UNK
     Route: 065

REACTIONS (17)
  - Pneumonia [Recovering/Resolving]
  - Neuropathy peripheral [Recovering/Resolving]
  - Febrile neutropenia [Recovering/Resolving]
  - Neutropenia [Recovering/Resolving]
  - Clostridium difficile colitis [Recovering/Resolving]
  - Sepsis [Recovering/Resolving]
  - Thrombocytopenia [Recovering/Resolving]
  - Pancytopenia [Recovering/Resolving]
  - Dysphagia [Recovering/Resolving]
  - Guillain-Barre syndrome [Recovering/Resolving]
  - Anaemia [Recovering/Resolving]
  - Dehydration [Recovering/Resolving]
  - Oropharyngeal candidiasis [Recovering/Resolving]
  - Periodontitis [Recovering/Resolving]
  - Gingivitis [Recovering/Resolving]
  - Toxicity to various agents [Recovering/Resolving]
  - Haematotoxicity [Recovering/Resolving]

NARRATIVE: CASE EVENT DATE: 20190829
